FAERS Safety Report 9554427 (Version 1)
Quarter: 2013Q3

REPORT INFORMATION
  Report Type: Report from Study
  Country: FR (occurrence: FR)
  Receive Date: 20130925
  Receipt Date: 20130925
  Transmission Date: 20140515
  Serious: Yes (Other)
  Sender: FDA-Public Use
  Company Number: FR-ROCHE-1281032

PATIENT
  Sex: 0

DRUGS (1)
  1. ALTEPLASE [Suspect]
     Indication: RUPTURED CEREBRAL ANEURYSM
     Dosage: 1 MG/ML

REACTIONS (1)
  - Cerebral vasoconstriction [Recovered/Resolved]
